FAERS Safety Report 16995391 (Version 1)
Quarter: 2019Q4

REPORT INFORMATION
  Report Type: Spontaneous
  Country: FR (occurrence: FR)
  Receive Date: 20191105
  Receipt Date: 20191105
  Transmission Date: 20200122
  Serious: Yes (Other)
  Sender: FDA-Public Use
  Company Number: FR-ASTRAZENECA-2019SF53460

PATIENT
  Age: 62 Year
  Sex: Female

DRUGS (16)
  1. SIMVASTATINE [Concomitant]
     Active Substance: SIMVASTATIN
  2. IPRATROPIUM BROMIDE\FENOTEROL HYDROBROMIDE [Concomitant]
     Active Substance: FENOTEROL HYDROBROMIDE\IPRATROPIUM BROMIDE
  3. PALBOCICLIB [Suspect]
     Active Substance: PALBOCICLIB
     Indication: BREAST CANCER METASTATIC
     Route: 048
     Dates: start: 20190529, end: 20191006
  4. SEEBRI BREEZHALER [Concomitant]
     Active Substance: GLYCOPYRROLATE
  5. CALCIFEDIOL [Concomitant]
     Active Substance: CALCIFEDIOL
  6. QUETIAPINE. [Concomitant]
     Active Substance: QUETIAPINE
  7. FASLODEX [Suspect]
     Active Substance: FULVESTRANT
     Indication: BREAST CANCER METASTATIC
     Route: 030
     Dates: start: 20190529
  8. NEBIVOLOL. [Concomitant]
     Active Substance: NEBIVOLOL
  9. EZETIMIBE. [Concomitant]
     Active Substance: EZETIMIBE
  10. PARACETAMOL [Concomitant]
     Active Substance: ACETAMINOPHEN
  11. MELATONINE [Concomitant]
     Active Substance: MELATONIN
  12. SERESTA [Concomitant]
     Active Substance: OXAZEPAM
  13. OROCAL D3 [Concomitant]
     Active Substance: CALCIUM CARBONATE\CHOLECALCIFEROL
  14. LOXAPAC [Concomitant]
     Active Substance: LOXAPINE
  15. RELVAR ELLIPTA [Concomitant]
     Active Substance: FLUTICASONE FUROATE\VILANTEROL TRIFENATATE
  16. NICOTINE. [Concomitant]
     Active Substance: NICOTINE

REACTIONS (4)
  - Pancytopenia [Recovered/Resolved]
  - Leukopenia [Recovered/Resolved]
  - Thrombocytopenia [Recovered/Resolved]
  - Anaemia [Recovering/Resolving]

NARRATIVE: CASE EVENT DATE: 201909
